FAERS Safety Report 9880340 (Version 1)
Quarter: 2014Q1

REPORT INFORMATION
  Report Type: Spontaneous
  Country: US (occurrence: None)
  Receive Date: 20140206
  Receipt Date: 20140206
  Transmission Date: 20141002
  Serious: No
  Sender: FDA-Public Use
  Company Number: None

PATIENT
  Age: 12 Year
  Sex: Male
  Weight: 34.93 kg

DRUGS (1)
  1. LAMOTRIGINE [Suspect]
     Indication: CONVULSION
     Route: 048
     Dates: start: 20140126, end: 20140201

REACTIONS (8)
  - Aphagia [None]
  - Cold sweat [None]
  - Flushing [None]
  - Heart rate increased [None]
  - Dizziness [None]
  - Vomiting [None]
  - Weight decreased [None]
  - Product substitution issue [None]
